FAERS Safety Report 7301994-7 (Version None)
Quarter: 2011Q1

REPORT INFORMATION
  Report Type: 
  Country: None (occurrence: None)
  Receive Date: 20110218
  Receipt Date: 20110214
  Transmission Date: 20110831
  Serious: Yes (Hospitalization)
  Sender: FDA-Public Use
  Company Number: NO-ABBOTT-11P-122-0705326-00

PATIENT
  Sex: Male

DRUGS (3)
  1. HUMIRA [Suspect]
     Route: 058
     Dates: start: 20101125, end: 20101125
  2. HUMIRA [Suspect]
     Indication: CROHN'S DISEASE
     Route: 058
     Dates: start: 20101222, end: 20101222
  3. HUMIRA [Suspect]
     Route: 058
     Dates: start: 20101209, end: 20101209

REACTIONS (3)
  - PRURITUS GENERALISED [None]
  - RESPIRATORY TRACT INFECTION [None]
  - ACUTE GENERALISED EXANTHEMATOUS PUSTULOSIS [None]
